FAERS Safety Report 21230151 (Version 2)
Quarter: 2022Q3

REPORT INFORMATION
  Report Type: Spontaneous
  Country: US (occurrence: US)
  Receive Date: 20220818
  Receipt Date: 20220930
  Transmission Date: 20221027
  Serious: No
  Sender: FDA-Public Use
  Company Number: US-SA-SAC20220817000239

PATIENT
  Age: 65 Year
  Sex: Male

DRUGS (1)
  1. DUPIXENT [Suspect]
     Active Substance: DUPILUMAB
     Dosage: 300 MG, OTHER
     Route: 058
     Dates: start: 202204

REACTIONS (3)
  - Abdominal discomfort [Unknown]
  - Weight increased [Unknown]
  - Sluggishness [Unknown]

NARRATIVE: CASE EVENT DATE: 20220101
